FAERS Safety Report 18348072 (Version 1)
Quarter: 2020Q4

REPORT INFORMATION
  Report Type: Spontaneous
  Country: CN (occurrence: CN)
  Receive Date: 20201006
  Receipt Date: 20201006
  Transmission Date: 20210114
  Serious: Yes (Life-Threatening, Other)
  Sender: FDA-Public Use
  Company Number: CN-GLAXOSMITHKLINE-CN2020APC196290

PATIENT
  Age: 61 Year
  Sex: Female
  Weight: 60 kg

DRUGS (5)
  1. SUFENTANIL CITRATE INJECTION [Concomitant]
     Active Substance: SUFENTANIL CITRATE
     Indication: INDUCTION OF ANAESTHESIA
     Dosage: 1 DF, QD
     Route: 042
     Dates: start: 20200514, end: 20200514
  2. CEFUROXIME SODIUM. [Suspect]
     Active Substance: CEFUROXIME SODIUM
     Indication: PROPHYLAXIS
     Dosage: 1.5 G, QD
     Route: 041
     Dates: start: 20200514, end: 20200514
  3. PROPOFOL MEDIUM AND LONG CHAIN FAT EMULSION INJECTION [Concomitant]
     Active Substance: PROPOFOL
     Indication: INDUCTION OF ANAESTHESIA
     Dosage: 1 DF, QD
     Route: 042
     Dates: start: 20200514, end: 20200514
  4. SODIUM CHLORIDE INJECTION [Concomitant]
     Active Substance: SODIUM CHLORIDE
     Indication: VEHICLE SOLUTION USE
     Dosage: 100 ML, QD
     Route: 041
     Dates: start: 20200514, end: 20200514
  5. CISATRACURIUM BESILATE INJECTION [Concomitant]
     Active Substance: CISATRACURIUM BESYLATE
     Indication: INDUCTION OF ANAESTHESIA
     Dosage: 2 DF, QD
     Route: 042
     Dates: start: 20200514, end: 20200514

REACTIONS (2)
  - Hypotension [Recovering/Resolving]
  - Anaphylactic shock [Recovering/Resolving]

NARRATIVE: CASE EVENT DATE: 20200514
